FAERS Safety Report 4511788-3 (Version None)
Quarter: 2004Q4

REPORT INFORMATION
  Report Type: 
  Country: None (occurrence: None)
  Receive Date: 20041123
  Receipt Date: 20041123
  Transmission Date: 20050328
  Serious: Yes (Other)
  Sender: FDA-Public Use
  Company Number: None

PATIENT
  Age: 77 Year
  Sex: Male
  Weight: 75.8 kg

DRUGS (9)
  1. MELOXICAM [Suspect]
  2. HYDROCORTISONE 5/ ACETAMINOPHEN 500MG [Concomitant]
  3. FLUNISOLIDE [Concomitant]
  4. GABAPENTIN [Concomitant]
  5. TERAZOSIN HCL [Concomitant]
  6. OMEPRAZOLE [Concomitant]
  7. IPATROPIUM BROMIDE [Concomitant]
  8. FELODIPINE [Concomitant]
  9. LORATADINE [Concomitant]

REACTIONS (1)
  - GASTROOESOPHAGEAL REFLUX DISEASE [None]
